FAERS Safety Report 4909863-4 (Version None)
Quarter: 2006Q1

REPORT INFORMATION
  Report Type: 
  Country: None (occurrence: None)
  Receive Date: 20060213
  Receipt Date: 20060201
  Transmission Date: 20060701
  Serious: Yes (Hospitalization, Other)
  Sender: FDA-Public Use
  Company Number: PHBS2006HK01796

PATIENT
  Age: 33 Year
  Sex: Female

DRUGS (6)
  1. CYCLOSPORINE [Suspect]
     Indication: LUNG TRANSPLANT
     Route: 065
  2. PREDNISOLONE [Suspect]
     Indication: LUNG TRANSPLANT
     Route: 065
  3. AZATHIOPRINE [Suspect]
     Indication: LUNG TRANSPLANT
     Dosage: 50 MG/D
     Route: 065
  4. SIROLIMUS [Suspect]
     Indication: LUNG TRANSPLANT
  5. METHOTREXATE [Suspect]
     Indication: LUNG TRANSPLANT
  6. MYCOPHENOLATE MOFETIL [Suspect]
     Indication: LUNG TRANSPLANT

REACTIONS (12)
  - ASPERGILLOSIS [None]
  - BRONCHOSTENOSIS [None]
  - EPSTEIN-BARR VIRUS TEST POSITIVE [None]
  - HAEMODIALYSIS [None]
  - LUNG TRANSPLANT REJECTION [None]
  - LYMPHOPROLIFERATIVE DISORDER [None]
  - MYELODYSPLASTIC SYNDROME [None]
  - PANCYTOPENIA [None]
  - PSEUDOMONAS INFECTION [None]
  - RENAL FAILURE CHRONIC [None]
  - SKIN LESION [None]
  - STENT PLACEMENT [None]
